FAERS Safety Report 5984789-6 (Version None)
Quarter: 2008Q4

REPORT INFORMATION
  Report Type: 
  Country: None (occurrence: None)
  Receive Date: 20081202
  Receipt Date: 20080602
  Transmission Date: 20090506
  Serious: Yes (Other)
  Sender: FDA-Public Use
  Company Number: 2008EU001040

PATIENT
  Sex: Female

DRUGS (2)
  1. PROTOPIC [Suspect]
     Indication: ACRODERMATITIS
     Dosage: 0.1 %, BID, TOPICAL
     Route: 061
  2. ALFASON [Concomitant]

REACTIONS (1)
  - BREAST CANCER RECURRENT [None]
